FAERS Safety Report 16248596 (Version 1)
Quarter: 2019Q2

REPORT INFORMATION
  Report Type: Spontaneous
  Country: PL (occurrence: PL)
  Receive Date: 20190429
  Receipt Date: 20190429
  Transmission Date: 20190711
  Serious: Yes (Life-Threatening, Hospitalization)
  Sender: FDA-Public Use
  Company Number: PL-TEVA-2019-PL-1042360

PATIENT
  Age: 69 Year
  Sex: Male
  Weight: 106 kg

DRUGS (1)
  1. OLFEN UNO [Suspect]
     Active Substance: DICLOFENAC SODIUM
     Indication: JOINT DISLOCATION
     Dosage: 150 MILLIGRAM DAILY;
     Route: 048
     Dates: start: 201501, end: 20161204

REACTIONS (2)
  - Gastrointestinal haemorrhage [Recovering/Resolving]
  - Gastritis erosive [Recovering/Resolving]

NARRATIVE: CASE EVENT DATE: 20161204
